FAERS Safety Report 8975467 (Version 2)
Quarter: 2013Q1

REPORT INFORMATION
  Report Type: Spontaneous
  Country: US (occurrence: US)
  Receive Date: 20121219
  Receipt Date: 20130125
  Transmission Date: 20140127
  Serious: No
  Sender: FDA-Public Use
  Company Number: US-PFIZER INC-2012321104

PATIENT
  Age: 30 Year
  Sex: Female
  Weight: 70.3 kg

DRUGS (4)
  1. LYRICA [Suspect]
     Indication: FIBROMYALGIA
     Dosage: 50 MG, 3X/DAY
     Route: 048
     Dates: start: 20121024, end: 20121217
  2. PREMARIN [Concomitant]
     Indication: MENOPAUSAL SYMPTOMS
     Dosage: 0.45 MG, 1X/DAY
  3. FLEXERIL [Concomitant]
     Indication: FIBROMYALGIA
     Dosage: 10 MG, 2X/DAY
  4. LODINE [Concomitant]
     Indication: FIBROMYALGIA
     Dosage: 500 MG, 1X/DAY

REACTIONS (1)
  - Glossitis [Recovered/Resolved]
